FAERS Safety Report 5068305-1 (Version None)
Quarter: 2006Q3

REPORT INFORMATION
  Report Type: 
  Country: None (occurrence: None)
  Receive Date: 20060802
  Receipt Date: 20050725
  Transmission Date: 20061208
  Serious: Yes (Other)
  Sender: FDA-Public Use
  Company Number: US-BRISTOL-MYERS SQUIBB COMPANY-13048913

PATIENT
  Age: 76 Year
  Sex: Female
  Weight: 100 kg

DRUGS (6)
  1. COUMADIN [Suspect]
     Indication: HEART RATE IRREGULAR
     Route: 048
  2. DIGITEK [Concomitant]
  3. METHYLDOPA [Concomitant]
  4. NONI JUICE [Concomitant]
     Indication: MEDICAL DIET
     Dates: start: 20050601, end: 20050701
  5. POTASSIUM CHLORIDE [Concomitant]
  6. SYNTHROID [Concomitant]

REACTIONS (1)
  - BLOOD TEST ABNORMAL [None]
